FAERS Safety Report 20628523 (Version 1)
Quarter: 2022Q1

REPORT INFORMATION
  Report Type: Spontaneous
  Country: US (occurrence: None)
  Receive Date: 20220323
  Receipt Date: 20220323
  Transmission Date: 20220423
  Serious: Yes (Other)
  Sender: FDA-Public Use
  Company Number: None

PATIENT
  Age: 74 Year
  Sex: Female
  Weight: 69.3 kg

DRUGS (3)
  1. BLENREP [Suspect]
     Active Substance: BELANTAMAB MAFODOTIN-BLMF
     Indication: Plasma cell myeloma
  2. BLENREP [Suspect]
     Active Substance: BELANTAMAB MAFODOTIN-BLMF
     Indication: Breast cancer
  3. BLENREP [Concomitant]
     Active Substance: BELANTAMAB MAFODOTIN-BLMF
     Dates: start: 20211220, end: 20220316

REACTIONS (2)
  - Cystoid macular oedema [None]
  - Infusion related reaction [None]

NARRATIVE: CASE EVENT DATE: 20220316
